FAERS Safety Report 8208821-4 (Version None)
Quarter: 2012Q1

REPORT INFORMATION
  Report Type: 
  Country: None (occurrence: None)
  Receive Date: 20120314
  Receipt Date: 20120308
  Transmission Date: 20120608
  Serious: Yes (Life-Threatening, Other)
  Sender: FDA-Public Use
  Company Number: JP-PFIZER INC-2012062475

PATIENT

DRUGS (2)
  1. OXYCONTIN [Concomitant]
     Route: 048
  2. LYRICA [Suspect]
     Route: 048

REACTIONS (1)
  - COMA [None]
